FAERS Safety Report 4286861-8 (Version None)
Quarter: 2004Q1

REPORT INFORMATION
  Report Type: 
  Country: None (occurrence: None)
  Receive Date: 20040204
  Receipt Date: 20040116
  Transmission Date: 20041129
  Serious: Yes (Other)
  Sender: FDA-Public Use
  Company Number: PHNU2004DE00571

PATIENT
  Age: 81 Year
  Sex: Female

DRUGS (1)
  1. VISUDYNE [Suspect]
     Indication: CHOROIDAL NEOVASCULARISATION
     Dates: start: 20021210, end: 20021210

REACTIONS (2)
  - FLUID RETENTION [None]
  - RETINAL HAEMORRHAGE [None]
